FAERS Safety Report 8561552-3 (Version None)
Quarter: 2012Q3

REPORT INFORMATION
  Report Type: 
  Country: None (occurrence: None)
  Receive Date: 20120802
  Receipt Date: 20120724
  Transmission Date: 20120928
  Serious: Yes (Other)
  Sender: FDA-Public Use
  Company Number: US-JNJFOC-20120713962

PATIENT
  Sex: Male

DRUGS (1)
  1. RISPERDAL [Suspect]
     Indication: PSYCHIATRIC SYMPTOM
     Route: 065
     Dates: start: 20090616

REACTIONS (9)
  - GYNAECOMASTIA [None]
  - BLOOD TESTOSTERONE DECREASED [None]
  - SEXUAL DYSFUNCTION [None]
  - PAINFUL ERECTION [None]
  - LOSS OF CONSCIOUSNESS [None]
  - AGGRESSION [None]
  - SUICIDAL IDEATION [None]
  - HOMICIDAL IDEATION [None]
  - BLOOD PROLACTIN INCREASED [None]
